FAERS Safety Report 9472191 (Version 1)
Quarter: 2013Q3

REPORT INFORMATION
  Report Type: Spontaneous
  Country: FR (occurrence: FR)
  Receive Date: 20130823
  Receipt Date: 20130823
  Transmission Date: 20140515
  Serious: Yes (Life-Threatening, Other)
  Sender: FDA-Public Use
  Company Number: FR-JNJFOC-20130809228

PATIENT
  Age: 77 Year
  Sex: Male

DRUGS (9)
  1. XARELTO [Suspect]
     Indication: ARRHYTHMIA SUPRAVENTRICULAR
     Route: 048
  2. XARELTO [Suspect]
     Indication: ARRHYTHMIA SUPRAVENTRICULAR
     Route: 048
     Dates: start: 20130618, end: 20130621
  3. KARDEGIC [Suspect]
     Indication: PRODUCT USED FOR UNKNOWN INDICATION
     Route: 065
     Dates: end: 20130621
  4. KARDEGIC [Suspect]
     Indication: PRODUCT USED FOR UNKNOWN INDICATION
     Route: 065
     Dates: start: 20130627
  5. KALEORID [Concomitant]
     Route: 065
  6. LERCAN [Concomitant]
     Route: 065
  7. MOPRAL [Concomitant]
     Route: 065
  8. EZETROL [Concomitant]
     Route: 065
  9. TRIATEC [Concomitant]
     Route: 065

REACTIONS (3)
  - Rectal haemorrhage [Recovered/Resolved]
  - Malaise [Recovered/Resolved]
  - Anaemia [Recovered/Resolved]
